FAERS Safety Report 10017853 (Version 3)
Quarter: 2015Q1

REPORT INFORMATION
  Report Type: Spontaneous
  Country: US (occurrence: None)
  Receive Date: 20140312
  Receipt Date: 20150220
  Transmission Date: 20150720
  Serious: Yes (Other)
  Sender: FDA-Public Use
  Company Number: ADR-2014-00229

PATIENT
  Age: 75 Year
  Sex: Male
  Weight: 68.04 kg

DRUGS (18)
  1. BACLOFEN. [Suspect]
     Active Substance: BACLOFEN
     Indication: CANCER PAIN
     Dosage: 129.8 MCG/DAY?START: 2010; SEE B5
     Route: 037
     Dates: start: 2010
  2. GABAPENTIN. [Suspect]
     Active Substance: GABAPENTIN
  3. MONTELUKAST SOD [Suspect]
     Active Substance: MONTELUKAST SODIUM
  4. GUAIFENESIN. [Suspect]
     Active Substance: GUAIFENESIN
  5. SENNA [Suspect]
     Active Substance: SENNA LEAF\SENNOSIDES\SENNOSIDES A AND B
  6. ANALGESIC [Suspect]
     Active Substance: UNSPECIFIED INGREDIENT
  7. BIOTIN [Suspect]
     Active Substance: BIOTIN
  8. CALMOSEPTINE [Suspect]
     Active Substance: MENTHOL\ZINC OXIDE
  9. BUPROPION HCL [Suspect]
     Active Substance: BUPROPION HYDROCHLORIDE
  10. ASPIRIN EC [Suspect]
     Active Substance: ASPIRIN
  11. NAPROXEN. [Suspect]
     Active Substance: NAPROXEN
  12. DILAUDID [Suspect]
     Active Substance: HYDROMORPHONE HYDROCHLORIDE
     Dosage: DAY
     Route: 037
  13. MORPHINE SULFATE IR TABLET [Suspect]
     Active Substance: MORPHINE SULFATE
  14. MAGNESIUM OXIDE. [Suspect]
     Active Substance: MAGNESIUM OXIDE
  15. CELEXA [Suspect]
     Active Substance: CITALOPRAM HYDROBROMIDE
  16. CETIRIZINE HCL [Suspect]
     Active Substance: CETIRIZINE HYDROCHLORIDE
  17. MS CONTIN CR [Suspect]
     Active Substance: MORPHINE SULFATE
  18. BUPIVACAINE [Suspect]
     Active Substance: BUPIVACAINE
     Dosage: 19.47 MG/DAY

REACTIONS (13)
  - Gait disturbance [None]
  - Device power source issue [None]
  - Poor dental condition [None]
  - Pain [None]
  - Blister [None]
  - Device malfunction [None]
  - Posture abnormal [None]
  - Performance status decreased [None]
  - Rib fracture [None]
  - Quality of life decreased [None]
  - Malnutrition [None]
  - Decreased activity [None]
  - Fall [None]

NARRATIVE: CASE EVENT DATE: 20140115
